FAERS Safety Report 12639761 (Version 1)
Quarter: 2016Q3

REPORT INFORMATION
  Report Type: Spontaneous
  Country: US (occurrence: US)
  Receive Date: 20160810
  Receipt Date: 20160810
  Transmission Date: 20161109
  Serious: No
  Sender: FDA-Public Use
  Company Number: US-BAYER-2016-151399

PATIENT
  Age: 21 Year
  Sex: Female

DRUGS (1)
  1. SKYLA [Suspect]
     Active Substance: LEVONORGESTREL
     Indication: CONTRACEPTION
     Dosage: 14 MCG/24HR, CONT
     Route: 015
     Dates: start: 20160422

REACTIONS (8)
  - Bacterial vaginosis [Not Recovered/Not Resolved]
  - Dyspareunia [None]
  - Burning sensation [None]
  - Medical device discomfort [Not Recovered/Not Resolved]
  - Vaginal discharge [None]
  - Procedural pain [None]
  - Abdominal pain lower [None]
  - Device defective [None]

NARRATIVE: CASE EVENT DATE: 20160722
